FAERS Safety Report 20811787 (Version 1)
Quarter: 2022Q2

REPORT INFORMATION
  Report Type: Spontaneous
  Country: US (occurrence: US)
  Receive Date: 20220511
  Receipt Date: 20220511
  Transmission Date: 20220721
  Serious: Yes (Other)
  Sender: FDA-Public Use
  Company Number: US-SA-SAC20220506000235

PATIENT
  Age: 59 Year
  Sex: Female

DRUGS (1)
  1. ZANTAC [Suspect]
     Active Substance: RANITIDINE HYDROCHLORIDE
     Indication: Dyspepsia
     Dosage: UNK, QD
     Dates: start: 199512, end: 200801

REACTIONS (5)
  - Colorectal cancer stage III [Unknown]
  - Gastrointestinal carcinoma [Unknown]
  - Hepatic cancer stage III [Unknown]
  - Gastric cancer stage III [Unknown]
  - Gallbladder cancer stage III [Unknown]

NARRATIVE: CASE EVENT DATE: 20080501
